FAERS Safety Report 6339722-4 (Version None)
Quarter: 2009Q3

REPORT INFORMATION
  Report Type: 
  Country: None (occurrence: None)
  Receive Date: 20090903
  Receipt Date: 20090824
  Transmission Date: 20100115
  Serious: Yes (Other)
  Sender: FDA-Public Use
  Company Number: CL-ELI_LILLY_AND_COMPANY-CL200908005262

PATIENT
  Age: 18 Year
  Sex: Female

DRUGS (2)
  1. SYMBYAX [Suspect]
     Indication: DEPRESSION
     Dosage: UNK, UNKNOWN
     Route: 065
  2. PROZAC [Suspect]
     Indication: DEPRESSION
     Dosage: 20 MG, UNKNOWN
     Route: 065

REACTIONS (6)
  - BRAIN OEDEMA [None]
  - CEREBRAL HAEMATOMA [None]
  - FALL [None]
  - LOSS OF CONSCIOUSNESS [None]
  - SYNCOPE [None]
  - TRAUMATIC BRAIN INJURY [None]
